FAERS Safety Report 4924867-3 (Version None)
Quarter: 2006Q1

REPORT INFORMATION
  Report Type: 
  Country: None (occurrence: None)
  Receive Date: 20060227
  Receipt Date: 20050127
  Transmission Date: 20060701
  Serious: Yes (Hospitalization)
  Sender: FDA-Public Use
  Company Number: US-MERCK-0501USA04326

PATIENT
  Age: 47 Year
  Sex: Male
  Weight: 132 kg

DRUGS (1)
  1. VIOXX [Suspect]
     Indication: ARTHRITIS
     Route: 048
     Dates: start: 20010701, end: 20010801

REACTIONS (4)
  - NASOPHARYNGITIS [None]
  - PNEUMONIA [None]
  - PULMONARY EMBOLISM [None]
  - THROMBOSIS [None]
